FAERS Safety Report 5485458-1 (Version None)
Quarter: 2007Q4

REPORT INFORMATION
  Report Type: 
  Country: None (occurrence: None)
  Receive Date: 20071010
  Receipt Date: 20071010
  Transmission Date: 20080405
  Serious: Yes (Hospitalization)
  Sender: FDA-Public Use
  Company Number: None

PATIENT
  Sex: Female
  Weight: 12.8 kg

DRUGS (1)
  1. PARAPLATIN [Suspect]
     Indication: ASTROCYTOMA
     Dosage: 98MG  ONCE  IV DRIP
     Route: 041
     Dates: start: 20071004, end: 20071004

REACTIONS (5)
  - ANAPHYLACTIC REACTION [None]
  - CARDIO-RESPIRATORY ARREST [None]
  - INFUSION RELATED REACTION [None]
  - RESPIRATORY DISTRESS [None]
  - UNRESPONSIVE TO STIMULI [None]
